FAERS Safety Report 4298490-0 (Version None)
Quarter: 2004Q1

REPORT INFORMATION
  Report Type: 
  Country: None (occurrence: None)
  Receive Date: 20040218
  Receipt Date: 20031117
  Transmission Date: 20041129
  Serious: Yes (Other)
  Sender: FDA-Public Use
  Company Number: US-BRISTOL-MYERS SQUIBB COMPANY-12440772

PATIENT
  Sex: Female

DRUGS (7)
  1. STADOL [Suspect]
     Route: 045
  2. STADOL [Suspect]
  3. TYLOX [Concomitant]
  4. DARVOCET [Concomitant]
  5. VISTARIL [Concomitant]
  6. ULTRAM [Concomitant]
  7. FLEXERIL [Concomitant]

REACTIONS (3)
  - BELLIGERENCE [None]
  - DEPENDENCE [None]
  - MOOD SWINGS [None]
